FAERS Safety Report 9215939 (Version 2)
Quarter: 2013Q2

REPORT INFORMATION
  Report Type: Spontaneous
  Country: US (occurrence: US)
  Receive Date: 20130408
  Receipt Date: 20130423
  Transmission Date: 20140414
  Serious: Yes (Hospitalization)
  Sender: FDA-Public Use
  Company Number: US-GENZYME-THYR-1000888

PATIENT
  Age: 35 Year
  Sex: Female

DRUGS (1)
  1. THYROGEN [Suspect]
     Indication: THERAPEUTIC PROCEDURE
     Dosage: 0.9 MG, QD (ARM)
     Route: 030
     Dates: start: 20130326, end: 20130327

REACTIONS (8)
  - Anxiety [Recovered/Resolved]
  - Dyspnoea [Recovered/Resolved]
  - Presyncope [Recovered/Resolved]
  - Hypoxia [Recovered/Resolved]
  - Pyrexia [Recovered/Resolved]
  - Tremor [Recovered/Resolved]
  - Nausea [Recovered/Resolved]
  - Drug administered at inappropriate site [Unknown]
